FAERS Safety Report 19395495 (Version 1)
Quarter: 2021Q2

REPORT INFORMATION
  Report Type: Spontaneous
  Country: US (occurrence: US)
  Receive Date: 20210609
  Receipt Date: 20210609
  Transmission Date: 20210717
  Serious: No
  Sender: FDA-Public Use
  Company Number: US-DSJP-DSU-2021-116928

PATIENT
  Sex: Female

DRUGS (1)
  1. WELCHOL [Suspect]
     Active Substance: COLESEVELAM HYDROCHLORIDE
     Indication: PRODUCT USED FOR UNKNOWN INDICATION
     Dosage: UNK
     Route: 065

REACTIONS (7)
  - Discomfort [Unknown]
  - Dyspnoea [Unknown]
  - Anxiety [Unknown]
  - Oropharyngeal discomfort [Unknown]
  - Feeding disorder [Unknown]
  - Dysphagia [Unknown]
  - Foreign body in throat [Unknown]
